FAERS Safety Report 5258229-9 (Version None)
Quarter: 2007Q1

REPORT INFORMATION
  Report Type: 
  Country: None (occurrence: None)
  Receive Date: 20070302
  Receipt Date: 20070219
  Transmission Date: 20070707
  Serious: No
  Sender: FDA-Public Use
  Company Number: 2007-154754-NL

PATIENT
  Sex: Female

DRUGS (10)
  1. MIRTAZAPINE [Suspect]
     Dosage: DF
     Dates: start: 20020201
  2. PAROXETINE HYDROCHLORIDE [Suspect]
     Indication: DEPRESSED MOOD
     Dosage: SEE IMAGE
     Dates: start: 20000620, end: 20020101
  3. PAROXETINE HYDROCHLORIDE [Suspect]
     Indication: DEPRESSED MOOD
     Dosage: SEE IMAGE
     Dates: start: 19950824
  4. PAROXETINE HYDROCHLORIDE [Suspect]
     Indication: DEPRESSED MOOD
     Dosage: SEE IMAGE
     Dates: start: 19951012
  5. PAROXETINE HYDROCHLORIDE [Suspect]
     Indication: DEPRESSED MOOD
     Dosage: SEE IMAGE
     Dates: start: 19951211
  6. PAROXETINE HYDROCHLORIDE [Suspect]
     Indication: DEPRESSED MOOD
     Dosage: SEE IMAGE
     Dates: start: 19960102
  7. BUSPIRONE HCL [Concomitant]
  8. GABAPENTIN [Concomitant]
  9. PROPRANOLOL [Concomitant]
  10. THIORIDAZINE HCL [Concomitant]

REACTIONS (11)
  - DEPRESSED MOOD [None]
  - DEPRESSION [None]
  - DRUG WITHDRAWAL SYNDROME [None]
  - HEADACHE [None]
  - HYPERHIDROSIS [None]
  - INAPPROPRIATE AFFECT [None]
  - INSOMNIA [None]
  - IRRITABILITY [None]
  - NAUSEA [None]
  - PAIN [None]
  - SUICIDAL IDEATION [None]
